FAERS Safety Report 4909052-3 (Version None)
Quarter: 2006Q1

REPORT INFORMATION
  Report Type: 
  Country: None (occurrence: None)
  Receive Date: 20060213
  Receipt Date: 20051229
  Transmission Date: 20060701
  Serious: Yes (Hospitalization)
  Sender: FDA-Public Use
  Company Number: HQWYE160903JAN06

PATIENT
  Sex: Female

DRUGS (7)
  1. ENBREL [Suspect]
     Indication: RHEUMATOID ARTHRITIS
     Route: 058
     Dates: start: 20050928, end: 20051224
  2. PREDNISOLONE [Suspect]
     Route: 048
  3. AZULFIDINE [Concomitant]
     Dates: end: 20050927
  4. BUCILLAMINE [Concomitant]
  5. SOLETON [Concomitant]
  6. MARZULENE S [Concomitant]
  7. MEDICON [Concomitant]

REACTIONS (2)
  - INFLUENZA [None]
  - RESPIRATORY FAILURE [None]
